FAERS Safety Report 17474852 (Version 3)
Quarter: 2020Q1

REPORT INFORMATION
  Report Type: Report from Study
  Country: US (occurrence: US)
  Receive Date: 20200228
  Receipt Date: 20200303
  Transmission Date: 20200409
  Serious: Yes (Life-Threatening, Other)
  Sender: FDA-Public Use
  Company Number: US-PFIZER INC-2020086111

PATIENT

DRUGS (2)
  1. PENTOSTATIN. [Suspect]
     Active Substance: PENTOSTATIN
     Indication: HAIRY CELL LEUKAEMIA
     Dosage: CYCLIC (NINE COURSES OF DCF THERAPY), STERILE LYOPHILIZED POWDER,EVERY 2 WEEKS, 9 CYCLES
     Route: 042
  2. INTERFERON ALFA NOS [Concomitant]
     Active Substance: INTERFERON ALFA-2A OR INTERFERON ALFA-2B
     Indication: HAIRY CELL LEUKAEMIA
     Dosage: 3000000 IU, CYCLIC (THREE TIMES A WEEK FOR 3 MONTHS)
     Route: 058

REACTIONS (2)
  - Suicidal ideation [Unknown]
  - Neurotoxicity [Unknown]
